FAERS Safety Report 25621824 (Version 1)
Quarter: 2025Q3

REPORT INFORMATION
  Report Type: Spontaneous
  Country: TW (occurrence: TW)
  Receive Date: 20250730
  Receipt Date: 20250730
  Transmission Date: 20251020
  Serious: Yes (Other)
  Sender: UNITED THERAPEUTICS
  Company Number: TW-UNITED THERAPEUTICS-UNT-2025-025427

PATIENT
  Age: 68 Year

DRUGS (6)
  1. TYVASO [Suspect]
     Active Substance: TREPROSTINIL
     Indication: Idiopathic pulmonary fibrosis
  2. PREDNISOLONE [Suspect]
     Active Substance: PREDNISOLONE
     Indication: Swelling
     Dosage: 10 MG, QD
  3. PREDNISOLONE [Suspect]
     Active Substance: PREDNISOLONE
     Indication: Drug hypersensitivity
  4. ITRACONAZOLE [Suspect]
     Active Substance: ITRACONAZOLE
     Indication: Fungal skin infection
     Dosage: 400 MG, QD
  5. ITRACONAZOLE [Suspect]
     Active Substance: ITRACONAZOLE
     Indication: Dermatitis exfoliative generalised
  6. DOXYCYCLINE [Concomitant]
     Active Substance: DOXYCYCLINE
     Indication: Folliculitis

REACTIONS (12)
  - Dermatitis exfoliative generalised [Recovered/Resolved]
  - Drug hypersensitivity [Unknown]
  - Swelling [Unknown]
  - Fungal skin infection [Recovered/Resolved]
  - Hiccups [Unknown]
  - Nausea [Unknown]
  - Skin mass [Recovered/Resolved]
  - Skin exfoliation [Recovered/Resolved]
  - Erythema [Recovered/Resolved]
  - Skin abrasion [Recovered/Resolved]
  - Therapy non-responder [Unknown]
  - Off label use [Unknown]
